FAERS Safety Report 9016076 (Version 1)
Quarter: 2013Q1

REPORT INFORMATION
  Report Type: Spontaneous
  Country: US (occurrence: US)
  Receive Date: 20130116
  Receipt Date: 20130116
  Transmission Date: 20140127
  Serious: Yes (Other)
  Sender: FDA-Public Use
  Company Number: US-009507513-1301USA004152

PATIENT
  Age: 46 Year
  Sex: Female

DRUGS (2)
  1. MONTELUKAST SODIUM [Suspect]
     Indication: ASTHMA
  2. PREDNISONE [Suspect]

REACTIONS (2)
  - Eosinophilic myocarditis [Unknown]
  - Steroid withdrawal syndrome [Unknown]
